FAERS Safety Report 21975716 (Version 1)
Quarter: 2023Q1

REPORT INFORMATION
  Report Type: Spontaneous
  Country: DE (occurrence: DE)
  Receive Date: 20230210
  Receipt Date: 20230210
  Transmission Date: 20230418
  Serious: Yes (Other)
  Sender: FDA-Public Use
  Company Number: DE-CELLTRION INC.-2022DE022236

PATIENT

DRUGS (7)
  1. INFLIXIMAB [Suspect]
     Active Substance: INFLIXIMAB
     Indication: Behcet^s syndrome
     Dosage: UNKNOWN
     Route: 065
  2. INFLIXIMAB [Suspect]
     Active Substance: INFLIXIMAB
     Indication: Uveitis
  3. ADALIMUMAB [Suspect]
     Active Substance: ADALIMUMAB
     Indication: Behcet^s syndrome
     Dosage: UNKNOWN
     Route: 058
  4. ADALIMUMAB [Suspect]
     Active Substance: ADALIMUMAB
     Indication: Iridocyclitis
     Dosage: UNK
  5. GOLIMUMAB [Suspect]
     Active Substance: GOLIMUMAB
     Indication: Uveitis
  6. ABATACEPT [Suspect]
     Active Substance: ABATACEPT
     Indication: Uveitis
  7. ETANERCEPT [Concomitant]
     Active Substance: ETANERCEPT
     Indication: Uveitis

REACTIONS (5)
  - Uveitis [Recovered/Resolved]
  - Iridocyclitis [Unknown]
  - Off label use [Unknown]
  - Off label use [Unknown]
  - Disease recurrence [Recovered/Resolved]
